FAERS Safety Report 6407483-6 (Version None)
Quarter: 2009Q4

REPORT INFORMATION
  Report Type: 
  Country: None (occurrence: None)
  Receive Date: 20091015
  Receipt Date: 20090928
  Transmission Date: 20100525
  Serious: Yes (Other)
  Sender: FDA-Public Use
  Company Number: BVT-000336

PATIENT
  Sex: Male

DRUGS (3)
  1. KINERET [Suspect]
     Indication: RHEUMATOID ARTHRITIS
     Dosage: (100 MG)
     Dates: start: 20020708, end: 20030115
  2. METHOTREXATE [Concomitant]
  3. BIOLOGIC DRUG [Concomitant]

REACTIONS (1)
  - MALIGNANT MELANOMA [None]
